FAERS Safety Report 10930689 (Version 1)
Quarter: 2015Q1

REPORT INFORMATION
  Report Type: Spontaneous
  Country: IT (occurrence: IT)
  Receive Date: 20150319
  Receipt Date: 20150319
  Transmission Date: 20150721
  Serious: Yes (Other)
  Sender: FDA-Public Use
  Company Number: IT-ACTAVIS-2015-05250

PATIENT
  Age: 70 Year
  Sex: Male
  Weight: 51 kg

DRUGS (6)
  1. OXALIPLATIN (UNKNOWN) [Suspect]
     Active Substance: OXALIPLATIN
     Indication: ADENOCARCINOMA OF COLON
     Dosage: 125 MG, CYCLICAL
     Route: 042
     Dates: start: 20140523, end: 20150113
  2. ANTRA                              /00661201/ [Concomitant]
     Active Substance: OMEPRAZOLE
     Indication: PRODUCT USED FOR UNKNOWN INDICATION
     Dosage: UNK UNK, UNKNOWN
     Route: 065
  3. LEVOFOLINIC ACID [Concomitant]
     Active Substance: LEVOLEUCOVORIN
     Indication: PRODUCT USED FOR UNKNOWN INDICATION
     Dosage: 300 MG, UNKNOWN
     Route: 042
     Dates: start: 20140523, end: 20150113
  4. AVASTIN [Suspect]
     Active Substance: BEVACIZUMAB
     Indication: ADENOCARCINOMA OF COLON
     Dosage: 255 MG, CYCLICAL
     Route: 042
     Dates: start: 20140523, end: 20150113
  5. FLUOROURACIL. [Suspect]
     Active Substance: FLUOROURACIL
     Indication: ADENOCARCINOMA OF COLON
     Dosage: 600, CYCLICAL, DECREASE IN OCT-2014
     Route: 040
     Dates: start: 20140523, end: 20150113
  6. FLUOROURACIL. [Suspect]
     Active Substance: FLUOROURACIL
     Dosage: 3645, CYCLICAL, DECREASE IN OCT-2014
     Route: 041
     Dates: start: 20140523, end: 20150113

REACTIONS (7)
  - Headache [Recovering/Resolving]
  - Erythema [Unknown]
  - Constipation [Recovering/Resolving]
  - Oedema [Unknown]
  - Diarrhoea [Not Recovered/Not Resolved]
  - Anaemia [Recovering/Resolving]
  - Neutropenia [Recovering/Resolving]

NARRATIVE: CASE EVENT DATE: 20140627
